FAERS Safety Report 8380328-3 (Version None)
Quarter: 2012Q2

REPORT INFORMATION
  Report Type: 
  Country: None (occurrence: None)
  Receive Date: 20120523
  Receipt Date: 20120517
  Transmission Date: 20120825
  Serious: Yes (Other)
  Sender: FDA-Public Use
  Company Number: US-PFIZER INC-2012120699

PATIENT
  Sex: Male
  Weight: 89 kg

DRUGS (8)
  1. SIMVASTATIN [Concomitant]
     Indication: BLOOD CHOLESTEROL INCREASED
     Dosage: 20 MG, DAILY
  2. METFORMIN [Concomitant]
     Indication: DIABETES MELLITUS
     Dosage: 500 MG, DAILY
  3. SUTENT [Suspect]
     Dosage: 25 MG, UNK
     Dates: start: 20111212
  4. PLAVIX [Concomitant]
     Dosage: UNK
  5. SUTENT [Suspect]
     Dosage: 25 MG, DAILY
     Dates: start: 20120301, end: 20120301
  6. METOPROLOL [Concomitant]
     Indication: HYPERTENSION
     Dosage: 50 MG, 2X/DAY
  7. SUTENT [Suspect]
     Indication: RENAL CELL CARCINOMA
     Dosage: 50 MG, DAILY
     Dates: start: 20111201
  8. DIGOXIN [Concomitant]
     Indication: CARDIAC DISORDER
     Dosage: 0.25 MG, DAILY

REACTIONS (9)
  - DIZZINESS [None]
  - DISEASE PROGRESSION [None]
  - PAIN [None]
  - RENAL CELL CARCINOMA [None]
  - NAUSEA [None]
  - LOSS OF CONSCIOUSNESS [None]
  - CHEST DISCOMFORT [None]
  - RASH [None]
  - FATIGUE [None]
